FAERS Safety Report 25372036 (Version 1)
Quarter: 2025Q2

REPORT INFORMATION
  Report Type: Spontaneous
  Country: US (occurrence: US)
  Receive Date: 20250529
  Receipt Date: 20250529
  Transmission Date: 20250717
  Serious: No
  Sender: ELI LILLY AND COMPANY
  Company Number: US-ELI_LILLY_AND_COMPANY-US202505022024

PATIENT
  Age: 70 Year
  Sex: Male

DRUGS (1)
  1. ZEPBOUND [Suspect]
     Active Substance: TIRZEPATIDE
     Indication: Weight control
     Route: 065
     Dates: start: 20250515

REACTIONS (5)
  - Migraine [Unknown]
  - Hunger [Unknown]
  - Abdominal discomfort [Unknown]
  - Malaise [Unknown]
  - Dizziness [Unknown]

NARRATIVE: CASE EVENT DATE: 20250501
